FAERS Safety Report 14029716 (Version 8)
Quarter: 2018Q1

REPORT INFORMATION
  Report Type: Spontaneous
  Country: US (occurrence: US)
  Receive Date: 20171002
  Receipt Date: 20180125
  Transmission Date: 20180508
  Serious: No
  Sender: FDA-Public Use
  Company Number: US-JAZZ-2017-US-011272

PATIENT
  Sex: Male
  Weight: 129.2 kg

DRUGS (51)
  1. TYLENOL [Concomitant]
     Active Substance: ACETAMINOPHEN
     Indication: INFLAMMATION
  2. METRONIDAZOLE. [Concomitant]
     Active Substance: METRONIDAZOLE
  3. SODIUM BICARBONATE. [Concomitant]
     Active Substance: SODIUM BICARBONATE
  4. HYDROCHLOROTHIAZIDE. [Concomitant]
     Active Substance: HYDROCHLOROTHIAZIDE
  5. HOLY BASIL [Concomitant]
  6. OMEGA-3 FISH OIL [Concomitant]
     Active Substance: FISH OIL\OMEGA-3 FATTY ACIDS
  7. XYREM [Suspect]
     Active Substance: SODIUM OXYBATE
     Indication: CIRCADIAN RHYTHM SLEEP DISORDER
     Dosage: 2.25G, BID
     Route: 048
     Dates: start: 201411, end: 201412
  8. CITALOPRAM [Concomitant]
     Active Substance: CITALOPRAM HYDROBROMIDE
     Indication: SLEEP DISORDER
  9. DOXYCYCLINE. [Concomitant]
     Active Substance: DOXYCYCLINE
  10. TRAMADOL HCL [Concomitant]
     Active Substance: TRAMADOL HYDROCHLORIDE
  11. MILK THISTLE                       /01131701/ [Concomitant]
  12. XYREM [Suspect]
     Active Substance: SODIUM OXYBATE
     Dosage: 4.5 G, BID
     Route: 048
  13. XYREM [Suspect]
     Active Substance: SODIUM OXYBATE
     Dosage: 4.5 G, QD SECOND DOSE
     Route: 048
  14. CITALOPRAM [Concomitant]
     Active Substance: CITALOPRAM HYDROBROMIDE
     Indication: ANXIETY
  15. IBUPROFEN. [Concomitant]
     Active Substance: IBUPROFEN
     Indication: INFLAMMATION
  16. HYDROMORPHONE [Concomitant]
     Active Substance: HYDROMORPHONE
  17. CLONAZEPAM. [Concomitant]
     Active Substance: CLONAZEPAM
  18. PROVIGIL [Concomitant]
     Active Substance: MODAFINIL
  19. ROZEREM [Concomitant]
     Active Substance: RAMELTEON
  20. BYETTA [Concomitant]
     Active Substance: EXENATIDE
  21. TEMAZEPAM. [Concomitant]
     Active Substance: TEMAZEPAM
  22. ALPHA LIPOIC ACID [Concomitant]
     Active Substance: .ALPHA.-LIPOIC ACID
  23. MI-ACID [Concomitant]
  24. GLIPIZIDE. [Concomitant]
     Active Substance: GLIPIZIDE
  25. GABAPENTIN. [Concomitant]
     Active Substance: GABAPENTIN
     Indication: DIABETIC FOOT
  26. OMEPRAZOLE. [Concomitant]
     Active Substance: OMEPRAZOLE
  27. ASPIRIN                            /00002701/ [Concomitant]
     Active Substance: ASPIRIN
  28. COENZYME Q10 [Concomitant]
     Active Substance: UBIDECARENONE
  29. XYREM [Suspect]
     Active Substance: SODIUM OXYBATE
     Dosage: 9 G, QD FIRST DOSE
     Route: 048
  30. TIZANIDINE. [Concomitant]
     Active Substance: TIZANIDINE
     Indication: MUSCLE RELAXANT THERAPY
  31. CONCERTA [Concomitant]
     Active Substance: METHYLPHENIDATE HYDROCHLORIDE
  32. ALEVE [Concomitant]
     Active Substance: NAPROXEN SODIUM
  33. TESTOSTERONE CYPIONATE. [Concomitant]
     Active Substance: TESTOSTERONE CYPIONATE
  34. VICODIN ES [Concomitant]
     Active Substance: ACETAMINOPHEN\HYDROCODONE BITARTRATE
  35. L-THREONINE [Concomitant]
  36. SELENIUM [Concomitant]
     Active Substance: SELENIUM
  37. XYREM [Suspect]
     Active Substance: SODIUM OXYBATE
     Dosage: 9 G, QD
     Route: 048
     Dates: start: 2017
  38. CYCLOBENZAPRINE. [Concomitant]
     Active Substance: CYCLOBENZAPRINE
     Indication: MUSCLE RELAXANT THERAPY
  39. LANTUS [Concomitant]
     Active Substance: INSULIN GLARGINE
     Indication: TYPE 2 DIABETES MELLITUS
  40. LIDOCAINE W/PRILOCAINE [Concomitant]
     Active Substance: LIDOCAINE\PRILOCAINE
  41. MELATONIN [Concomitant]
     Active Substance: MELATONIN
  42. XYREM [Suspect]
     Active Substance: SODIUM OXYBATE
     Indication: SLEEP DISORDER
     Dosage: DOSE ADJUSTMENTS
     Route: 048
     Dates: start: 201412, end: 20170612
  43. XYREM [Suspect]
     Active Substance: SODIUM OXYBATE
     Dosage: 12 G, QD, FIRST DOSE
     Route: 048
  44. XYREM [Suspect]
     Active Substance: SODIUM OXYBATE
     Dosage: 6 G, QD, SECOND DOSE
     Route: 048
  45. NOVOLOG [Concomitant]
     Active Substance: INSULIN ASPART
  46. HYDROXYZINE HCL [Concomitant]
     Active Substance: HYDROXYZINE HYDROCHLORIDE
  47. LIDOCAINE HCL [Concomitant]
     Active Substance: LIDOCAINE HYDROCHLORIDE
  48. VITAMIN D3 [Concomitant]
     Active Substance: CHOLECALCIFEROL
  49. CITALOPRAM [Concomitant]
     Active Substance: CITALOPRAM HYDROBROMIDE
  50. ECHINACEA                          /01323501/ [Concomitant]
     Active Substance: ECHINACEA PURPUREA
  51. PSYLLIUM FIBRE [Concomitant]

REACTIONS (5)
  - Treatment noncompliance [Unknown]
  - Cognitive disorder [Unknown]
  - Insomnia [Unknown]
  - Feeling abnormal [Unknown]
  - Drug ineffective [Unknown]
